FAERS Safety Report 6902133-4 (Version None)
Quarter: 2010Q3

REPORT INFORMATION
  Report Type: 
  Country: None (occurrence: None)
  Receive Date: 20100802
  Receipt Date: 20100802
  Transmission Date: 20110219
  Serious: Yes (Hospitalization)
  Sender: FDA-Public Use
  Company Number: None

PATIENT
  Age: 63 Year
  Sex: Male
  Weight: 80.83 kg

DRUGS (2)
  1. RITUXIMAB [Suspect]
     Indication: NON-HODGKIN'S LYMPHOMA
     Dosage: 810 MG ONCE IV
     Route: 042
     Dates: start: 20100429, end: 20100429
  2. CYCLOPHOSPHAMIDE [Suspect]
     Indication: NON-HODGKIN'S LYMPHOMA
     Dosage: 1620 MG ONCE IV
     Route: 041
     Dates: start: 20100429, end: 20100429

REACTIONS (6)
  - CHILLS [None]
  - CONFUSIONAL STATE [None]
  - INFUSION RELATED REACTION [None]
  - SEPSIS [None]
  - TREMOR [None]
  - URINARY INCONTINENCE [None]
